FAERS Safety Report 9733449 (Version 1)
Quarter: 2013Q4

REPORT INFORMATION
  Report Type: Spontaneous
  Country: ZA (occurrence: ZA)
  Receive Date: 20131205
  Receipt Date: 20131205
  Transmission Date: 20140711
  Serious: Yes (Congenital Anomaly)
  Sender: FDA-Public Use
  Company Number: ZA-BAYER-2013-147571

PATIENT
  Age: 28 Day
  Sex: Female
  Weight: 3.44 kg

DRUGS (2)
  1. MIRENA [Suspect]
     Dosage: UNK UNK, CONT
     Route: 064
  2. MIRENA [Suspect]
     Dosage: UNK UNK, CONT
     Route: 064

REACTIONS (2)
  - Foetal cardiac disorder [None]
  - Foetal exposure timing unspecified [None]
